FAERS Safety Report 12347432 (Version 2)
Quarter: 2016Q2

REPORT INFORMATION
  Report Type: Spontaneous
  Country: US (occurrence: US)
  Receive Date: 20160509
  Receipt Date: 20160602
  Transmission Date: 20160815
  Serious: Yes (Other)
  Sender: FDA-Public Use
  Company Number: US-GLAXOSMITHKLINE-US2016063718

PATIENT

DRUGS (1)
  1. GAS-X EXTRA STRENGTH [Suspect]
     Active Substance: DIMETHICONE
     Indication: PRODUCT USED FOR UNKNOWN INDICATION
     Dosage: UNK

REACTIONS (3)
  - Haematochezia [Unknown]
  - Product quality issue [Unknown]
  - Gastrointestinal haemorrhage [Unknown]
